FAERS Safety Report 6817555-X (Version None)
Quarter: 2010Q3

REPORT INFORMATION
  Report Type: 
  Country: None (occurrence: None)
  Receive Date: 20100706
  Receipt Date: 20100629
  Transmission Date: 20110219
  Serious: Yes (Other)
  Sender: FDA-Public Use
  Company Number: US-B.I. PHARMACEUTICALS,INC./RIDGEFIELD-2010-BP-07453PF

PATIENT
  Sex: Male
  Weight: 113.4 kg

DRUGS (26)
  1. SPIRIVA [Suspect]
     Indication: CHRONIC OBSTRUCTIVE PULMONARY DISEASE
  2. SPIRIVA [Suspect]
     Indication: DYSPNOEA
  3. NEURONTIN [Suspect]
     Indication: NEURALGIA
     Dosage: 600 MG
     Route: 048
     Dates: end: 20100401
  4. LYRICA [Suspect]
     Indication: NEURALGIA
     Dosage: 50 MG
     Route: 048
     Dates: start: 20100401
  5. LYRICA [Suspect]
     Dosage: 100 MG
     Route: 048
     Dates: start: 20100101
  6. COUMADIN [Concomitant]
  7. METOPROLOL TARTRATE [Concomitant]
  8. ASPIRIN [Concomitant]
  9. NEPHRO-VITE [Concomitant]
  10. SODIUM [Concomitant]
  11. HUMULIN R [Concomitant]
  12. PLAVIX [Concomitant]
  13. KEPPRA [Concomitant]
  14. ADVAIR DISKUS 100/50 [Concomitant]
  15. PERCOCET [Concomitant]
  16. ZOLOFT [Concomitant]
  17. ACCUPRIL [Concomitant]
  18. CLONIDINE [Concomitant]
  19. FELODIPINE [Concomitant]
  20. PHOSLO [Concomitant]
  21. BUMEX [Concomitant]
  22. RENVELA [Concomitant]
  23. SYMBICORT [Concomitant]
  24. ALBUTEROL [Concomitant]
  25. PRAVASTATIN [Concomitant]
  26. ALLOPURINOL [Concomitant]

REACTIONS (5)
  - ABDOMINAL DISCOMFORT [None]
  - BLOOD PHOSPHORUS INCREASED [None]
  - DRUG INEFFECTIVE [None]
  - MALAISE [None]
  - NAUSEA [None]
